FAERS Safety Report 19678944 (Version 1)
Quarter: 2021Q3

REPORT INFORMATION
  Report Type: Spontaneous
  Country: US (occurrence: US)
  Receive Date: 20210809
  Receipt Date: 20210809
  Transmission Date: 20211014
  Serious: Yes (Hospitalization)
  Sender: FDA-Public Use
  Company Number: None

PATIENT
  Age: 68 Year
  Sex: Male

DRUGS (1)
  1. XELODA [Suspect]
     Active Substance: CAPECITABINE
     Indication: PANCREATIC CARCINOMA
     Route: 048
     Dates: start: 20210801, end: 20210801

REACTIONS (4)
  - Blood glucose decreased [None]
  - Loss of consciousness [None]
  - Gait inability [None]
  - Fall [None]

NARRATIVE: CASE EVENT DATE: 20210801
